FAERS Safety Report 9687850 (Version 1)
Quarter: 2013Q4

REPORT INFORMATION
  Report Type: Spontaneous
  Country: US (occurrence: None)
  Receive Date: 20131113
  Receipt Date: 20131113
  Transmission Date: 20140711
  Serious: Yes (Death)
  Sender: FDA-Public Use
  Company Number: None

PATIENT
  Age: 22 Year
  Sex: Male
  Weight: 80.74 kg

DRUGS (1)
  1. METHADONE 10MG [Suspect]
     Indication: SUBSTANCE ABUSE
     Dosage: 6 PILLS THREE TIMES DAILY
     Route: 048
     Dates: start: 20130209, end: 20130212

REACTIONS (2)
  - Drug withdrawal syndrome [None]
  - Toxicity to various agents [None]
